FAERS Safety Report 23670740 (Version 1)
Quarter: 2024Q1

REPORT INFORMATION
  Report Type: Spontaneous
  Country: CH (occurrence: CH)
  Receive Date: 20240326
  Receipt Date: 20240326
  Transmission Date: 20240409
  Serious: Yes (Hospitalization)
  Sender: FDA-Public Use
  Company Number: None

PATIENT
  Age: 67 Year
  Sex: Female
  Weight: 62.8 kg

DRUGS (5)
  1. EMPAGLIFLOZIN\METFORMIN HYDROCHLORIDE [Suspect]
     Active Substance: EMPAGLIFLOZIN\METFORMIN HYDROCHLORIDE
     Indication: Type 2 diabetes mellitus
     Dates: end: 20240219
  2. ALOE VERA LEAF [Suspect]
     Active Substance: ALOE VERA LEAF
     Indication: Type 2 diabetes mellitus
     Dosage: AYANT MAL COMPRIS LA POSOLOGIE ELLE PREND FINALEMENT ENVIRON 3X LA DOSE PRESCRITE. LA DOSE JOURNA...
     Dates: start: 20240206, end: 20240216
  3. BERBERINE [Suspect]
     Active Substance: BERBERINE
     Indication: Type 2 diabetes mellitus
     Dosage: AYANT MAL COMPRIS LA POSOLOGIE ELLE PREND FINALEMENT ENVIRON 3X LA DOSE PRESCRITE. DOSE JOURNALI?...
     Dates: start: 20240206, end: 20240216
  4. LERCANIDIPINE HYDROCHLORIDE [Concomitant]
     Active Substance: LERCANIDIPINE HYDROCHLORIDE
     Indication: Product used for unknown indication
  5. CLOPIDOGREL [Concomitant]
     Active Substance: CLOPIDOGREL BISULFATE
     Indication: Peripheral arterial occlusive disease

REACTIONS (5)
  - Diarrhoea [Recovered/Resolved]
  - Abdominal pain [Recovered/Resolved]
  - Nausea [Recovered/Resolved]
  - Vomiting [Recovered/Resolved]
  - Euglycaemic diabetic ketoacidosis [Recovered/Resolved]

NARRATIVE: CASE EVENT DATE: 20240214
